FAERS Safety Report 10751500 (Version 1)
Quarter: 2015Q1

REPORT INFORMATION
  Report Type: Spontaneous
  Country: US (occurrence: None)
  Receive Date: 20150126
  Receipt Date: 20150126
  Transmission Date: 20150721
  Serious: No
  Sender: FDA-Public Use
  Company Number: MC201300170

PATIENT

DRUGS (1)
  1. ANGIOMAX [Suspect]
     Active Substance: BIVALIRUDIN
     Indication: CORONARY ARTERY DISEASE
     Dosage: UNK, BOLUS (BOLUS), INTRAVENOUS (NOT OTHERWISE SPECIFIED)
     Dates: start: 201303, end: 201303

REACTIONS (2)
  - Thrombosis in device [None]
  - Coagulation time abnormal [None]

NARRATIVE: CASE EVENT DATE: 201303
